FAERS Safety Report 11877957 (Version 1)
Quarter: 2015Q4

REPORT INFORMATION
  Report Type: Spontaneous
  Country: JP (occurrence: JP)
  Receive Date: 20151230
  Receipt Date: 20151230
  Transmission Date: 20160305
  Serious: Yes (Other)
  Sender: FDA-Public Use
  Company Number: JP-BRISTOL-MYERS SQUIBB COMPANY-BMS-2015-090540

PATIENT
  Age: 65 Year
  Sex: Male

DRUGS (1)
  1. ERBITUX [Suspect]
     Active Substance: CETUXIMAB
     Indication: SQUAMOUS CELL CARCINOMA OF HEAD AND NECK
     Dosage: UNK
     Route: 041
     Dates: start: 20150311, end: 20150507

REACTIONS (19)
  - Laryngeal oedema [Recovering/Resolving]
  - Blood creatinine increased [Unknown]
  - Dysphonia [Unknown]
  - White blood cell count decreased [Unknown]
  - Aspartate aminotransferase increased [Unknown]
  - Stomatitis [Unknown]
  - Pharyngeal inflammation [Unknown]
  - Anaemia [Unknown]
  - Alanine aminotransferase increased [Unknown]
  - Hyperkalaemia [Unknown]
  - Hypomagnesaemia [Unknown]
  - Radiation skin injury [Unknown]
  - Dysphagia [Unknown]
  - Decreased appetite [Unknown]
  - Blood urea increased [Unknown]
  - Neutrophil count decreased [Unknown]
  - Dermatitis acneiform [Unknown]
  - Blood lactate dehydrogenase increased [Unknown]
  - Hyponatraemia [Unknown]

NARRATIVE: CASE EVENT DATE: 20150318
